FAERS Safety Report 4384487-9 (Version None)
Quarter: 2004Q2

REPORT INFORMATION
  Report Type: 
  Country: None (occurrence: None)
  Receive Date: 20040624
  Receipt Date: 20030929
  Transmission Date: 20050107
  Serious: Yes (Disabling)
  Sender: FDA-Public Use
  Company Number: US-MERCK-0310USA00138

PATIENT
  Age: 55 Year
  Sex: Female
  Weight: 100 kg

DRUGS (3)
  1. [THERAPY UNSPECIFIED] [Concomitant]
     Route: 065
  2. VIOXX [Suspect]
     Indication: ARTHRITIS
     Route: 048
  3. VIOXX [Suspect]
     Indication: PAIN
     Route: 048

REACTIONS (10)
  - BLOOD PRESSURE INCREASED [None]
  - DEPRESSION [None]
  - DRUG HYPERSENSITIVITY [None]
  - EMOTIONAL DISTRESS [None]
  - FAECES DISCOLOURED [None]
  - GASTRIC DISORDER [None]
  - HYPERTENSION [None]
  - OEDEMA PERIPHERAL [None]
  - POLYTRAUMATISM [None]
  - SLEEP APNOEA SYNDROME [None]
